FAERS Safety Report 10403649 (Version 7)
Quarter: 2017Q1

REPORT INFORMATION
  Report Type: Spontaneous
  Country: US (occurrence: US)
  Receive Date: 20140822
  Receipt Date: 20170328
  Transmission Date: 20170428
  Serious: Yes (Other)
  Sender: FDA-Public Use
  Company Number: US-ELI_LILLY_AND_COMPANY-US201408004831

PATIENT
  Age: 55 Year
  Sex: Male

DRUGS (6)
  1. WELLBUTRIN [Concomitant]
     Active Substance: BUPROPION HYDROCHLORIDE
     Dosage: 200 MG, QD
     Route: 048
  2. CYMBALTA [Suspect]
     Active Substance: DULOXETINE HYDROCHLORIDE
     Indication: FIBROMYALGIA
  3. MEDROL [Concomitant]
     Active Substance: METHYLPREDNISOLONE
     Dosage: UNK, UNKNOWN
     Route: 048
  4. CYMBALTA [Suspect]
     Active Substance: DULOXETINE HYDROCHLORIDE
     Indication: DEPRESSION
     Dosage: 20 MG, QD
     Route: 048
     Dates: start: 20111201, end: 201302
  5. AMBIEN [Concomitant]
     Active Substance: ZOLPIDEM TARTRATE
     Indication: SLEEP DISORDER
     Dosage: 10 MG, PRN
     Route: 048
  6. LUNESTA [Concomitant]
     Active Substance: ESZOPICLONE
     Indication: SLEEP DISORDER
     Dosage: 2 MG, PRN
     Route: 048

REACTIONS (29)
  - General physical health deterioration [Unknown]
  - Psychiatric symptom [Unknown]
  - Affect lability [Unknown]
  - Memory impairment [Unknown]
  - Aphasia [Unknown]
  - Sleep disorder [Unknown]
  - Confusional state [Unknown]
  - Anxiety [Unknown]
  - Paraesthesia [Not Recovered/Not Resolved]
  - Photopsia [Unknown]
  - Tremor [Unknown]
  - Insomnia [Unknown]
  - Suicidal ideation [Unknown]
  - Feeling abnormal [Unknown]
  - Abdominal pain upper [Unknown]
  - Tinnitus [Unknown]
  - Disturbance in attention [Not Recovered/Not Resolved]
  - Memory impairment [Unknown]
  - Dyskinesia [Unknown]
  - Speech disorder [Unknown]
  - Dizziness [Unknown]
  - Nausea [Unknown]
  - Anger [Unknown]
  - Drug withdrawal syndrome [Not Recovered/Not Resolved]
  - Mood swings [Unknown]
  - Fatigue [Unknown]
  - Irritability [Unknown]
  - Muscle twitching [Unknown]
  - Dysphoria [Unknown]

NARRATIVE: CASE EVENT DATE: 20121004
